FAERS Safety Report 8205997-X (Version None)
Quarter: 2012Q1

REPORT INFORMATION
  Report Type: 
  Country: None (occurrence: None)
  Receive Date: 20120313
  Receipt Date: 20120306
  Transmission Date: 20120608
  Serious: Yes (Death)
  Sender: FDA-Public Use
  Company Number: KR-MPIJNJ-2012-01694

PATIENT

DRUGS (4)
  1. VELCADE [Suspect]
     Indication: MULTIPLE MYELOMA
     Dosage: 1.3 MG/M2, CYCLIC
     Route: 040
  2. DOXORUBICIN HCL [Suspect]
     Indication: MULTIPLE MYELOMA
     Dosage: 9 MG/M2, CYCLIC
     Route: 040
  3. DEXAMETHASONE [Suspect]
     Indication: MULTIPLE MYELOMA
     Dosage: 40 MG, CYCLIC
     Route: 042
  4. NEUPOGEN [Concomitant]
     Indication: MULTIPLE MYELOMA
     Route: 058

REACTIONS (1)
  - DEATH [None]
